FAERS Safety Report 5668016-5 (Version None)
Quarter: 2008Q1

REPORT INFORMATION
  Report Type: 
  Country: None (occurrence: None)
  Receive Date: 20080315
  Receipt Date: 20080212
  Transmission Date: 20080703
  Serious: No
  Sender: FDA-Public Use
  Company Number: US-ABBOTT-08P-163-0438307-00

PATIENT
  Sex: Male
  Weight: 78.088 kg

DRUGS (4)
  1. HUMIRA [Suspect]
     Indication: PSORIATIC ARTHROPATHY
     Dosage: SYRINGE
     Route: 058
     Dates: start: 20071001, end: 20080101
  2. HUMIRA [Suspect]
     Indication: PSORIASIS
     Route: 058
     Dates: start: 20080101
  3. HUMIRA [Suspect]
     Indication: PSORIATIC ARTHROPATHY
     Route: 058
     Dates: start: 20080101
  4. HUMIRA [Suspect]
     Indication: PSORIASIS

REACTIONS (5)
  - CHILLS [None]
  - INJECTION SITE ERYTHEMA [None]
  - NAUSEA [None]
  - PYREXIA [None]
  - SWELLING [None]
